FAERS Safety Report 6353985-0 (Version None)
Quarter: 2009Q3

REPORT INFORMATION
  Report Type: 
  Country: None (occurrence: None)
  Receive Date: 20090914
  Receipt Date: 20090901
  Transmission Date: 20100115
  Serious: Yes (Hospitalization)
  Sender: FDA-Public Use
  Company Number: DE-ELI_LILLY_AND_COMPANY-DE200909000377

PATIENT
  Sex: Male
  Weight: 80 kg

DRUGS (3)
  1. CYMBALTA [Suspect]
     Dosage: 90 MG, DAILY (1/D)
     Route: 048
  2. CYMBALTA [Suspect]
     Dosage: 150 MG, DAILY (1/D)
     Route: 048
  3. QUETIAPINE [Concomitant]
     Dosage: UNK, UNKNOWN
     Route: 065

REACTIONS (3)
  - GENERALISED OEDEMA [None]
  - HOSPITALISATION [None]
  - OVERDOSE [None]
